FAERS Safety Report 10147002 (Version 1)
Quarter: 2014Q2

REPORT INFORMATION
  Report Type: Spontaneous
  Country: FR (occurrence: FR)
  Receive Date: 20140501
  Receipt Date: 20140501
  Transmission Date: 20141212
  Serious: Yes (Hospitalization)
  Sender: FDA-Public Use
  Company Number: FR-GLAXOSMITHKLINE-B0988523A

PATIENT
  Age: 86 Year
  Sex: Female

DRUGS (8)
  1. ZINNAT [Suspect]
     Indication: EAR INFECTION
     Route: 065
     Dates: start: 20140328, end: 20140404
  2. PREVISCAN (FLUINDIONE) [Suspect]
     Indication: ATRIAL FIBRILLATION
     Route: 048
  3. SOLUPRED [Suspect]
     Indication: EAR INFECTION
     Route: 048
     Dates: start: 20140328, end: 20140404
  4. IXPRIM [Concomitant]
     Route: 065
  5. LIPANTHYL [Concomitant]
     Route: 065
  6. LASILIX [Concomitant]
     Route: 065
  7. CORDARONE [Concomitant]
     Route: 065
  8. INEXIUM [Concomitant]
     Route: 065

REACTIONS (3)
  - Haematoma [Recovering/Resolving]
  - International normalised ratio increased [Recovered/Resolved]
  - Drug interaction [Unknown]
